FAERS Safety Report 8808577 (Version 1)
Quarter: 2012Q4

REPORT INFORMATION
  Report Type: Report from Study
  Country: AU (occurrence: AU)
  Receive Date: 20120926
  Receipt Date: 20120926
  Transmission Date: 20130627
  Serious: Yes (Hospitalization)
  Sender: FDA-Public Use
  Company Number: PHHO2010AU15116

PATIENT
  Age: 67 Year
  Sex: Female
  Weight: 114 kg

DRUGS (5)
  1. COMPARATOR PACLITAXEL [Suspect]
     Indication: BREAST CANCER METASTATIC
     Dates: start: 20100413
  2. COMPARATOR TRASTUZUMAB [Suspect]
     Indication: BREAST CANCER METASTATIC
     Dates: start: 20100413
  3. BLINDED AFINITOR [Suspect]
     Indication: BREAST CANCER METASTATIC
     Dosage: Code not broken
     Route: 048
     Dates: start: 20100415
  4. BLINDED NO TREATMENT RECEIVED [Suspect]
     Indication: BREAST CANCER METASTATIC
     Dosage: Code not broken
     Route: 048
     Dates: start: 20100415
  5. BLINDED PLACEBO [Suspect]
     Indication: BREAST CANCER METASTATIC
     Dosage: Code not broken
     Route: 048
     Dates: start: 20100415

REACTIONS (1)
  - Peripheral sensory neuropathy [Recovered/Resolved]
